FAERS Safety Report 5246643-7 (Version None)
Quarter: 2007Q1

REPORT INFORMATION
  Report Type: 
  Country: None (occurrence: None)
  Receive Date: 20070226
  Receipt Date: 20070207
  Transmission Date: 20070707
  Serious: No
  Sender: FDA-Public Use
  Company Number: CA-AVENTIS-200711401GDDC

PATIENT
  Age: 29 Year
  Sex: Female

DRUGS (3)
  1. LEFLUNOMIDE [Suspect]
  2. METHOTREXATE [Suspect]
  3. HUMIRA [Suspect]

REACTIONS (1)
  - DRUG EXPOSURE DURING PREGNANCY [None]
